FAERS Safety Report 7001767-9 (Version None)
Quarter: 2010Q3

REPORT INFORMATION
  Report Type: 
  Country: None (occurrence: None)
  Receive Date: 20100920
  Receipt Date: 20090817
  Transmission Date: 20110219
  Serious: Yes (Other)
  Sender: FDA-Public Use
  Company Number: US-ASTRAZENECA-2007UW27510

PATIENT
  Age: 17431 Day
  Sex: Female
  Weight: 92.1 kg

DRUGS (10)
  1. SEROQUEL [Suspect]
     Indication: PARANOIA
     Dosage: 100-300 MG
     Route: 048
     Dates: start: 20020512, end: 20070419
  2. SEROQUEL [Suspect]
     Indication: THINKING ABNORMAL
     Dosage: 100-300 MG
     Route: 048
     Dates: start: 20020512, end: 20070419
  3. SEROQUEL [Suspect]
     Dosage: 100-300 MG
     Route: 048
     Dates: start: 20020512, end: 20070419
  4. SEROQUEL [Suspect]
     Indication: INSOMNIA
     Dosage: 100-300 MG
     Route: 048
     Dates: start: 20020512, end: 20070419
  5. SEROQUEL [Suspect]
     Indication: DEPRESSION
     Dosage: 100-300 MG
     Route: 048
     Dates: start: 20020512, end: 20070419
  6. RISPERDAL [Suspect]
     Indication: DEPRESSION
     Dates: start: 19980101, end: 20010101
  7. RISPERDAL [Suspect]
     Indication: INSOMNIA
     Dates: start: 19980101, end: 20010101
  8. RISPERDAL [Suspect]
     Indication: THINKING ABNORMAL
     Dates: start: 19980101, end: 20010101
  9. RISPERDAL [Suspect]
     Dates: start: 19980101, end: 20010101
  10. RISPERDAL [Suspect]
     Indication: PARANOIA
     Dates: start: 19980101, end: 20010101

REACTIONS (5)
  - CHRONIC OBSTRUCTIVE PULMONARY DISEASE [None]
  - DIABETES MELLITUS [None]
  - DIABETIC KETOACIDOSIS [None]
  - ROTATOR CUFF SYNDROME [None]
  - TENDONITIS [None]
